FAERS Safety Report 7903022-9 (Version None)
Quarter: 2011Q4

REPORT INFORMATION
  Report Type: 
  Country: None (occurrence: None)
  Receive Date: 20111103
  Receipt Date: 20111019
  Transmission Date: 20120403
  Serious: Yes (Hospitalization)
  Sender: FDA-Public Use
  Company Number: 2010SP004937

PATIENT
  Age: 56 Year
  Sex: Male

DRUGS (15)
  1. DESLORATADINE [Suspect]
     Indication: PRODUCT USED FOR UNKNOWN INDICATION
     Dosage: 1 DF; QD; PO
     Route: 048
     Dates: start: 20080709
  2. CLARITHROMYCIN [Suspect]
     Indication: LEGIONELLA INFECTION
     Dosage: 2 DF; QD; IV
     Route: 042
     Dates: start: 20080701, end: 20080714
  3. ACETAMINOPHEN [Suspect]
     Indication: PRODUCT USED FOR UNKNOWN INDICATION
     Dosage: 4 DF; QD; IV
     Route: 042
     Dates: start: 20080629, end: 20080717
  4. LEVOFLOXACIN [Suspect]
     Indication: LEGIONELLA INFECTION
     Dosage: 2 DF; QD; IV
     Route: 042
     Dates: start: 20080701
  5. NUTRI-FLEX (GLUCOSAMINE FULFATE, HYDROLYZED GELATIN, METHYL SULFONYL M [Suspect]
     Indication: PRODUCT USED FOR UNKNOWN INDICATION
  6. ZYVOX [Suspect]
     Indication: STAPHYLOCOCCAL INFECTION
     Dosage: 3 DF; QD; PO
     Route: 048
     Dates: start: 20080714
  7. ACETAMINOPHEN [Suspect]
     Indication: PRODUCT USED FOR UNKNOWN INDICATION
     Dosage: 4 DF; QD; PO
     Route: 048
     Dates: start: 20080718
  8. ROCEPHIN [Suspect]
     Indication: PRODUCT USED FOR UNKNOWN INDICATION
     Dosage: 2 DF; QD; IV
     Route: 042
     Dates: start: 20080629, end: 20080702
  9. MOXIFLOXACIN HYDROCHLORIDE [Suspect]
     Indication: PRODUCT USED FOR UNKNOWN INDICATION
     Dosage: 1 DF; QD; IV
     Route: 014
     Dates: start: 20080626, end: 20080702
  10. OMEPRAZOLE [Suspect]
     Indication: PRODUCT USED FOR UNKNOWN INDICATION
     Dosage: 1 DF; QD; PO
     Route: 048
     Dates: start: 20080717
  11. CIPROFLOXACIN [Suspect]
     Indication: PRODUCT USED FOR UNKNOWN INDICATION
     Dosage: 3 DF; QD; IV
     Route: 042
     Dates: start: 20080629, end: 20080704
  12. PIPERACILLIN AND TAZOBACTAM [Suspect]
     Indication: SUPERINFECTION
     Dosage: 3 DF; QD; IV
     Route: 042
     Dates: start: 20080707, end: 20080711
  13. VENOFER [Suspect]
     Indication: PRODUCT USED FOR UNKNOWN INDICATION
     Dosage: 3 DF; QD; IV
     Route: 042
     Dates: start: 20080711
  14. PRIMAXIN [Suspect]
     Indication: INFECTION
     Dosage: 3 DF; QD; PO
     Route: 048
     Dates: start: 20080718
  15. LOVENOX [Suspect]
     Indication: PRODUCT USED FOR UNKNOWN INDICATION
     Dosage: 2 DF; QD; SC
     Route: 058
     Dates: start: 20080705

REACTIONS (3)
  - CYTOLYTIC HEPATITIS [None]
  - SUPERINFECTION [None]
  - PSEUDOMONAS INFECTION [None]
